FAERS Safety Report 19876977 (Version 1)
Quarter: 2021Q3

REPORT INFORMATION
  Report Type: Spontaneous
  Country: CA (occurrence: CA)
  Receive Date: 20210924
  Receipt Date: 20210924
  Transmission Date: 20211014
  Serious: Yes (Hospitalization, Other)
  Sender: FDA-Public Use
  Company Number: CA-APOTEX-2021AP043101

PATIENT
  Age: 52 Year
  Sex: Female

DRUGS (6)
  1. XYLOMETAZOLINE [Suspect]
     Active Substance: XYLOMETAZOLINE
     Indication: NASAL CONGESTION
     Dosage: UNK, QD
     Route: 045
  2. DULOXETINE. [Suspect]
     Active Substance: DULOXETINE
     Indication: SCIATICA
     Dosage: 60 MILLIGRAM, QD
     Route: 065
  3. BUDESONIDE;FORMOTEROL [Concomitant]
     Active Substance: BUDESONIDE\FORMOTEROL
     Indication: PRODUCT USED FOR UNKNOWN INDICATION
     Dosage: UNK
     Route: 065
  4. XYLOMETAZOLINE [Suspect]
     Active Substance: XYLOMETAZOLINE
     Dosage: UNK, 2?3 TIMES DAILY
     Route: 045
  5. SALBUTAMOL [Concomitant]
     Active Substance: ALBUTEROL
     Indication: PRODUCT USED FOR UNKNOWN INDICATION
     Dosage: UNK, PRN
     Route: 065
  6. DULOXETINE. [Suspect]
     Active Substance: DULOXETINE
     Dosage: 30 MILLIGRAM, Q.O.D. (3 DOSES)
     Route: 065

REACTIONS (2)
  - Reversible cerebral vasoconstriction syndrome [Recovering/Resolving]
  - Thunderclap headache [Recovered/Resolved]
